FAERS Safety Report 4527300-9 (Version None)
Quarter: 2004Q4

REPORT INFORMATION
  Report Type: 
  Country: None (occurrence: None)
  Receive Date: 20041130
  Receipt Date: 20040921
  Transmission Date: 20050328
  Serious: No
  Sender: FDA-Public Use
  Company Number: FABR-10789

PATIENT
  Age: 47 Year
  Sex: Male
  Weight: 56.6996 kg

DRUGS (2)
  1. FABRAZYME [Suspect]
     Indication: FABRY'S DISEASE
     Dosage: 70 MG Q2WKS IV
     Route: 042
     Dates: start: 20040212, end: 20040819
  2. TYLENOL (CAPLET) [Concomitant]

REACTIONS (10)
  - ABDOMINAL DISTENSION [None]
  - BLOOD PRESSURE INCREASED [None]
  - CHILLS [None]
  - CONSTIPATION [None]
  - DYSGEUSIA [None]
  - FEELING COLD [None]
  - HEADACHE [None]
  - NAUSEA [None]
  - PYREXIA [None]
  - RHINORRHOEA [None]
